FAERS Safety Report 13745752 (Version 1)
Quarter: 2017Q3

REPORT INFORMATION
  Report Type: Spontaneous
  Country: CA (occurrence: CA)
  Receive Date: 20170712
  Receipt Date: 20170712
  Transmission Date: 20171127
  Serious: Yes (Death)
  Sender: FDA-Public Use
  Company Number: CA-PFIZER INC-2017296774

PATIENT
  Age: 40 Year
  Sex: Male

DRUGS (17)
  1. MEROPENEM. [Suspect]
     Active Substance: MEROPENEM
     Indication: CYSTIC FIBROSIS LUNG
     Dosage: UNK
     Route: 042
  2. CEFTAZIDIME. [Suspect]
     Active Substance: CEFTAZIDIME
     Indication: BRONCHIECTASIS
  3. COLISTIN [Suspect]
     Active Substance: COLISTIN
     Indication: BURKHOLDERIA CEPACIA COMPLEX INFECTION
  4. CEFTAZIDIME. [Suspect]
     Active Substance: CEFTAZIDIME
     Indication: CYSTIC FIBROSIS LUNG
     Dosage: UNK
  5. PIPERACILLIN/TAZOBACTAM [Suspect]
     Active Substance: PIPERACILLIN SODIUM\TAZOBACTAM SODIUM
     Indication: BRONCHIECTASIS
  6. TOBRAMYCIN. [Suspect]
     Active Substance: TOBRAMYCIN
     Indication: CYSTIC FIBROSIS LUNG
     Dosage: UNK
     Route: 042
  7. PIPERACILLIN/TAZOBACTAM [Suspect]
     Active Substance: PIPERACILLIN SODIUM\TAZOBACTAM SODIUM
     Indication: BURKHOLDERIA CEPACIA COMPLEX INFECTION
  8. MEROPENEM. [Suspect]
     Active Substance: MEROPENEM
     Indication: BURKHOLDERIA CEPACIA COMPLEX INFECTION
  9. TOBRAMYCIN. [Suspect]
     Active Substance: TOBRAMYCIN
     Indication: BURKHOLDERIA CEPACIA COMPLEX INFECTION
  10. TELITHROMYCIN [Suspect]
     Active Substance: TELITHROMYCIN
     Indication: INFECTIVE PULMONARY EXACERBATION OF CYSTIC FIBROSIS
     Dosage: UNK
     Route: 048
  11. TELITHROMYCIN [Suspect]
     Active Substance: TELITHROMYCIN
     Dosage: UNK
  12. CEFTAZIDIME. [Suspect]
     Active Substance: CEFTAZIDIME
     Indication: BURKHOLDERIA CEPACIA COMPLEX INFECTION
  13. TOBRAMYCIN. [Suspect]
     Active Substance: TOBRAMYCIN
     Indication: BRONCHIECTASIS
  14. COLISTIN [Suspect]
     Active Substance: COLISTIN
     Indication: CYSTIC FIBROSIS LUNG
     Dosage: UNK
  15. PIPERACILLIN/TAZOBACTAM [Suspect]
     Active Substance: PIPERACILLIN SODIUM\TAZOBACTAM SODIUM
     Indication: CYSTIC FIBROSIS LUNG
     Dosage: UNK
     Route: 042
  16. MEROPENEM. [Suspect]
     Active Substance: MEROPENEM
     Indication: BRONCHIECTASIS
  17. COLISTIN [Suspect]
     Active Substance: COLISTIN
     Indication: BRONCHIECTASIS

REACTIONS (2)
  - Drug resistance [Fatal]
  - Therapeutic response decreased [Fatal]
